FAERS Safety Report 24810095 (Version 1)
Quarter: 2025Q1

REPORT INFORMATION
  Report Type: Spontaneous
  Country: US (occurrence: US)
  Receive Date: 20250106
  Receipt Date: 20250106
  Transmission Date: 20250409
  Serious: No
  Sender: ROCHE
  Company Number: US-ROCHE-10000172078

PATIENT
  Age: 67 Year
  Sex: Female

DRUGS (3)
  1. ERIVEDGE [Suspect]
     Active Substance: VISMODEGIB
     Indication: Bone neoplasm
     Route: 048
  2. ERIVEDGE [Suspect]
     Active Substance: VISMODEGIB
     Indication: Soft tissue neoplasm
  3. ERIVEDGE [Suspect]
     Active Substance: VISMODEGIB
     Indication: Neoplasm skin

REACTIONS (2)
  - Alopecia [Unknown]
  - Off label use [Unknown]
